FAERS Safety Report 12248413 (Version 2)
Quarter: 2016Q2

REPORT INFORMATION
  Report Type: Spontaneous
  Country: TW (occurrence: TW)
  Receive Date: 20160408
  Receipt Date: 20160411
  Transmission Date: 20160815
  Serious: Yes (Other)
  Sender: FDA-Public Use
  Company Number: TW-ROCHE-1738515

PATIENT
  Age: 65 Year
  Sex: Female

DRUGS (2)
  1. RIBAVIRIN. [Suspect]
     Active Substance: RIBAVIRIN
     Indication: HEPATITIS C
     Route: 065
     Dates: start: 201107, end: 201201
  2. INTERFERON ALFA-2A [Suspect]
     Active Substance: INTERFERON ALFA-2A
     Indication: HEPATITIS C
     Route: 065
     Dates: start: 201107, end: 201201

REACTIONS (4)
  - Vomiting [Unknown]
  - Drug ineffective [Unknown]
  - Fatigue [Unknown]
  - Hepatic cancer [Unknown]
